FAERS Safety Report 7445180-9 (Version None)
Quarter: 2011Q2

REPORT INFORMATION
  Report Type: 
  Country: None (occurrence: None)
  Receive Date: 20110420
  Receipt Date: 20110404
  Transmission Date: 20111010
  Serious: Yes (Death, Other)
  Sender: FDA-Public Use
  Company Number: 2009-04718

PATIENT
  Age: 57 Year
  Sex: Male
  Weight: 47 kg

DRUGS (19)
  1. PLATELETS, HUMAN BLOOD (PLATELETS, HUMAN BLOOD) [Concomitant]
  2. POLARAMINE [Concomitant]
  3. OMEPRAZOLE [Concomitant]
  4. OXYCONTIN [Concomitant]
  5. COTRIM [Concomitant]
  6. NORVASC [Concomitant]
  7. OZEX (TOSUFLOXACIN TOSILATE) [Concomitant]
  8. ALLOPURINOL [Concomitant]
  9. ISOSORBIDE DINITRAE (ISOSORBIDE DINITRATE) [Concomitant]
  10. TEGRETOL [Concomitant]
  11. OPSO (MORPHINE HYDROCHLORIDE) [Concomitant]
  12. VELCADE [Suspect]
     Indication: MULTIPLE MYELOMA
     Dosage: 1.1 MG, INTRAVENOUS; 1.4 MG, INTRAVENOUS; 1.9 MG, INTRAVENOUS
     Route: 042
     Dates: start: 20071120, end: 20071120
  13. VELCADE [Suspect]
     Indication: MULTIPLE MYELOMA
     Dosage: 1.1 MG, INTRAVENOUS; 1.4 MG, INTRAVENOUS; 1.9 MG, INTRAVENOUS
     Route: 042
     Dates: start: 20080118, end: 20080128
  14. VELCADE [Suspect]
     Indication: MULTIPLE MYELOMA
     Dosage: 1.1 MG, INTRAVENOUS; 1.4 MG, INTRAVENOUS; 1.9 MG, INTRAVENOUS
     Route: 042
     Dates: start: 20071127, end: 20071211
  15. FLUCONAZOLE [Concomitant]
  16. MAGMITT (MAGNESIUM OXIDE) [Concomitant]
  17. PREDNISOLONE [Concomitant]
  18. DEXAMETHASONE SODIUM PHOSPHATE [Concomitant]
  19. METHYCOBAL (MECOBALAMIN) [Concomitant]

REACTIONS (5)
  - TUMOUR LYSIS SYNDROME [None]
  - MULTIPLE MYELOMA [None]
  - PLATELET COUNT DECREASED [None]
  - NEOPLASM PROGRESSION [None]
  - WHITE BLOOD CELL COUNT DECREASED [None]
